FAERS Safety Report 24379045 (Version 2)
Quarter: 2024Q4

REPORT INFORMATION
  Report Type: Spontaneous
  Country: SE (occurrence: SE)
  Receive Date: 20240930
  Receipt Date: 20241011
  Transmission Date: 20250115
  Serious: Yes (Disabling, Other)
  Sender: AUROBINDO
  Company Number: SE-SEMPA-2024-006766

PATIENT
  Age: 12 Year
  Sex: Male
  Weight: 39 kg

DRUGS (13)
  1. SERTRALINE HYDROCHLORIDE [Suspect]
     Active Substance: SERTRALINE HYDROCHLORIDE
     Indication: Anxiety
     Dosage: UNK [1 TABLETT 75 MG PER DAG / KV?LL. DOS VARIERAT 25-75]
     Route: 048
     Dates: start: 20231109
  2. SERTRALINE HYDROCHLORIDE [Suspect]
     Active Substance: SERTRALINE HYDROCHLORIDE
     Indication: Intermittent explosive disorder
  3. SERTRALINE HYDROCHLORIDE [Suspect]
     Active Substance: SERTRALINE HYDROCHLORIDE
     Indication: Attention deficit hyperactivity disorder
  4. CONCERTA [Suspect]
     Active Substance: METHYLPHENIDATE HYDROCHLORIDE
     Indication: Attention deficit hyperactivity disorder
     Dosage: UNK [1 G?NG / DAG (MORGON) STYRKA VARIERAT 18 MG - 45 MG]
     Route: 048
     Dates: start: 20231220
  5. CONCERTA [Suspect]
     Active Substance: METHYLPHENIDATE HYDROCHLORIDE
     Indication: Intermittent explosive disorder
  6. CONCERTA [Suspect]
     Active Substance: METHYLPHENIDATE HYDROCHLORIDE
     Indication: Anxiety
  7. INTUNIV [Suspect]
     Active Substance: GUANFACINE HYDROCHLORIDE
     Indication: Intermittent explosive disorder
     Dosage: UNK [1 TABELETT / DAGLIGEN (KV?LLEN) STYRKA FR?N 1-4 MG]
     Route: 048
     Dates: start: 20230802
  8. INTUNIV [Suspect]
     Active Substance: GUANFACINE HYDROCHLORIDE
     Indication: Attention deficit hyperactivity disorder
  9. INTUNIV [Suspect]
     Active Substance: GUANFACINE HYDROCHLORIDE
     Indication: Anxiety
  10. RITALIN [Suspect]
     Active Substance: METHYLPHENIDATE HYDROCHLORIDE
     Indication: Attention deficit hyperactivity disorder
     Dosage: UNK
     Route: 048
     Dates: start: 20230911, end: 20231006
  11. RITALIN [Suspect]
     Active Substance: METHYLPHENIDATE HYDROCHLORIDE
     Indication: Anxiety
  12. RITALIN [Suspect]
     Active Substance: METHYLPHENIDATE HYDROCHLORIDE
     Indication: Intermittent explosive disorder
  13. Mellozzan [Concomitant]
     Indication: Product used for unknown indication
     Dosage: UNK (1,5-2 ML DAGLIGEN)
     Route: 048
     Dates: start: 20230607

REACTIONS (27)
  - Anxiety disorder [Recovered/Resolved]
  - Anxiety [Recovering/Resolving]
  - Agitation [Recovering/Resolving]
  - Condition aggravated [Unknown]
  - Enuresis [Unknown]
  - Fatigue [Not Recovered/Not Resolved]
  - Hypotension [Recovering/Resolving]
  - Hyperacusis [Recovering/Resolving]
  - Intermittent explosive disorder [Recovering/Resolving]
  - Judgement impaired [Recovering/Resolving]
  - Mania [Recovering/Resolving]
  - Panic attack [Recovering/Resolving]
  - Palpitations [Recovering/Resolving]
  - Suspiciousness [Recovering/Resolving]
  - Tic [Not Recovered/Not Resolved]
  - Urinary incontinence [Not Recovered/Not Resolved]
  - Aggression [Unknown]
  - Decreased appetite [Unknown]
  - Depressed mood [Unknown]
  - Insomnia [Unknown]
  - Impulsive behaviour [Unknown]
  - Poor school attendance [Unknown]
  - Restlessness [Unknown]
  - Syncope [Unknown]
  - Social problem [Unknown]
  - Self-destructive behaviour [Unknown]
  - Suicidal ideation [Unknown]

NARRATIVE: CASE EVENT DATE: 20230901
